FAERS Safety Report 8001968-7 (Version None)
Quarter: 2011Q4

REPORT INFORMATION
  Report Type: 
  Country: None (occurrence: None)
  Receive Date: 20111220
  Receipt Date: 20111205
  Transmission Date: 20120403
  Serious: Yes (Other)
  Sender: FDA-Public Use
  Company Number: FK201102889

PATIENT
  Age: 71 Year
  Sex: Female

DRUGS (8)
  1. DEXAMETHASONE SODIUM PHOSPHATE [Suspect]
     Indication: PROPHYLAXIS
  2. LEVETIRACETAM [Concomitant]
  3. VALPROIC ACID [Suspect]
     Indication: EPILEPSY
     Dosage: SEE IMAGE
     Route: 042
     Dates: start: 20100927
  4. VALPROIC ACID [Suspect]
     Indication: EPILEPSY
     Dosage: SEE IMAGE
     Route: 042
     Dates: start: 20100927
  5. VALPROIC ACID [Suspect]
     Indication: EPILEPSY
     Dosage: SEE IMAGE
     Route: 042
     Dates: start: 20100928
  6. VALPROIC ACID [Suspect]
     Indication: EPILEPSY
     Dosage: SEE IMAGE
     Route: 042
     Dates: start: 20100928
  7. WARFARIN SODIUM [Suspect]
     Indication: DRUG THERAPY
     Dosage: 2.5 MG, M-TU-W-TH-FR, ORAL; 5 MG, SAT-SUN, ORAL
     Route: 048
  8. MIDAZOLAM (MIDAZOLAM HYDROCHLORID) (MIDAZOLAM HYDROCHLORID) [Concomitant]

REACTIONS (5)
  - COMPLEX PARTIAL SEIZURES [None]
  - WHITE BLOOD CELL COUNT INCREASED [None]
  - INTERNATIONAL NORMALISED RATIO INCREASED [None]
  - DRUG INTERACTION [None]
  - BRAIN OEDEMA [None]
